FAERS Safety Report 8922757 (Version 4)
Quarter: 2013Q1

REPORT INFORMATION
  Report Type: Spontaneous
  Country: US (occurrence: US)
  Receive Date: 20121123
  Receipt Date: 20130118
  Transmission Date: 20140127
  Serious: No
  Sender: FDA-Public Use
  Company Number: US-PFIZER INC-2012292628

PATIENT
  Age: 47 Year
  Sex: Male
  Weight: 113 kg

DRUGS (6)
  1. LYRICA [Suspect]
     Indication: DIABETIC NEUROPATHY
     Dosage: 150 MG, 2X/DAY
     Dates: start: 2009, end: 201210
  2. LANTUS [Concomitant]
     Indication: DIABETES MELLITUS
     Dosage: 50 IU, 2X/DAY
  3. NOVOLOG [Concomitant]
     Indication: DIABETES MELLITUS
     Dosage: 14-26 DAILY
  4. VYTORIN [Concomitant]
     Indication: BLOOD CHOLESTEROL ABNORMAL
     Dosage: 80 MG, DAILY
  5. LISINOPRIL [Concomitant]
     Indication: BLOOD PRESSURE ABNORMAL
     Dosage: 40 MG,DAILY
  6. LISINOPRIL [Concomitant]
     Indication: RENAL DISORDER

REACTIONS (4)
  - Spinal disorder [Not Recovered/Not Resolved]
  - Pain in extremity [Not Recovered/Not Resolved]
  - Abdominal discomfort [Not Recovered/Not Resolved]
  - Limb discomfort [Not Recovered/Not Resolved]
